FAERS Safety Report 14417201 (Version 1)
Quarter: 2018Q1

REPORT INFORMATION
  Report Type: Spontaneous
  Country: US (occurrence: US)
  Receive Date: 20180122
  Receipt Date: 20180122
  Transmission Date: 20180509
  Serious: No
  Sender: FDA-Public Use
  Company Number: US-BAYER-2018-011569

PATIENT
  Age: 57 Year
  Sex: Female
  Weight: 113.38 kg

DRUGS (3)
  1. GADAVIST [Suspect]
     Active Substance: GADOBUTROL
     Indication: NUCLEAR MAGNETIC RESONANCE IMAGING BRAIN
     Dosage: 13 ML, UNK
     Route: 042
     Dates: start: 20171220
  2. GADAVIST [Suspect]
     Active Substance: GADOBUTROL
     Indication: HEADACHE
  3. GADAVIST [Suspect]
     Active Substance: GADOBUTROL
     Indication: BREAST CANCER

REACTIONS (1)
  - Pruritus [Recovered/Resolved]
